FAERS Safety Report 5013721-7 (Version None)
Quarter: 2006Q2

REPORT INFORMATION
  Report Type: 
  Country: None (occurrence: None)
  Receive Date: 20060525
  Receipt Date: 20060508
  Transmission Date: 20061013
  Serious: Yes (Hospitalization, Other)
  Sender: FDA-Public Use
  Company Number: US200605001753

PATIENT
  Sex: Female

DRUGS (3)
  1. FORTEO [Suspect]
     Dates: end: 20060408
  2. FORTEO [Suspect]
     Dates: start: 20060409, end: 20060409
  3. FORTEO [Concomitant]

REACTIONS (14)
  - ACCIDENTAL OVERDOSE [None]
  - ADRENAL INSUFFICIENCY [None]
  - BLOOD CALCIUM DECREASED [None]
  - BLOOD PHOSPHORUS DECREASED [None]
  - DIABETES MELLITUS [None]
  - DRUG ADMINISTRATION ERROR [None]
  - INCORRECT DOSE ADMINISTERED [None]
  - MEDICATION ERROR [None]
  - MUSCLE SPASMS [None]
  - NAUSEA [None]
  - NEOPLASM RECURRENCE [None]
  - PANCREATIC MASS [None]
  - PHARMACEUTICAL PRODUCT COMPLAINT [None]
  - VOMITING [None]
